FAERS Safety Report 5166151-1 (Version None)
Quarter: 2006Q4

REPORT INFORMATION
  Report Type: 
  Country: None (occurrence: None)
  Receive Date: 20061129
  Receipt Date: 20061120
  Transmission Date: 20070319
  Serious: Yes (Other)
  Sender: FDA-Public Use
  Company Number: 2006144198

PATIENT
  Age: 43 Year
  Sex: Male
  Weight: 63.5036 kg

DRUGS (6)
  1. CHANTIX [Suspect]
     Indication: SMOKING CESSATION THERAPY
     Dosage: 0.5 MG (0.5 MG, 1 IN 1 D)
     Dates: start: 20061010, end: 20061111
  2. HYDROCODONE (HYDROCODONE) [Concomitant]
  3. PREMARIN [Concomitant]
  4. ZOLOFT [Concomitant]
  5. ALEVE [Concomitant]
  6. IBUPROFEN [Concomitant]

REACTIONS (4)
  - ANGER [None]
  - PHYSICAL ASSAULT [None]
  - PSYCHIATRIC SYMPTOM [None]
  - SOMNOLENCE [None]
